FAERS Safety Report 13001345 (Version 1)
Quarter: 2016Q4

REPORT INFORMATION
  Report Type: Spontaneous
  Country: TW (occurrence: TW)
  Receive Date: 20161206
  Receipt Date: 20161206
  Transmission Date: 20170207
  Serious: Yes (Hospitalization, Other)
  Sender: FDA-Public Use
  Company Number: PHHY2016TW165676

PATIENT
  Age: 57 Year

DRUGS (2)
  1. SUTENT [Suspect]
     Active Substance: SUNITINIB MALATE
     Indication: PRODUCT USED FOR UNKNOWN INDICATION
     Dosage: UNK
     Route: 065
     Dates: start: 20050216
  2. GLIVEC [Suspect]
     Active Substance: IMATINIB MESYLATE
     Indication: GASTROINTESTINAL STROMAL TUMOUR
     Route: 065
     Dates: start: 20041002

REACTIONS (18)
  - Therapeutic response decreased [Unknown]
  - Weight decreased [Unknown]
  - Drug intolerance [Unknown]
  - Lymphadenopathy [Unknown]
  - Diarrhoea [Unknown]
  - Tumour rupture [Unknown]
  - Metastases to lymph nodes [Unknown]
  - Abdominal lymphadenopathy [Unknown]
  - Hypertension [Unknown]
  - Abdominal pain [Unknown]
  - Gastrointestinal oedema [Unknown]
  - Metastasis [Unknown]
  - Peritoneal adhesions [Unknown]
  - Treatment failure [Unknown]
  - Pneumoperitoneum [Unknown]
  - Peritoneal neoplasm [Unknown]
  - Metastases to liver [Unknown]
  - Arthralgia [Unknown]

NARRATIVE: CASE EVENT DATE: 20050126
